FAERS Safety Report 7968911-8 (Version None)
Quarter: 2011Q4

REPORT INFORMATION
  Report Type: 
  Country: None (occurrence: None)
  Receive Date: 20111208
  Receipt Date: 20111201
  Transmission Date: 20120403
  Serious: Yes (Death, Other)
  Sender: FDA-Public Use
  Company Number: CIP-2011-00939

PATIENT

DRUGS (3)
  1. LEVOFLOXACIN [Suspect]
     Indication: INFECTION
     Dosage: (500 MG, ON DAYS 5 TO 11 OF EACH 3 WEEK CYCLE), ORAL
     Route: 048
  2. CARBOPLATIN [Suspect]
     Indication: NON-SMALL CELL LUNG CANCER
     Dosage: AREA UNDER THE CURVE 6 (DAY 1 EVERY 3 WEEKS0, INTRAVENOUS
     Route: 042
  3. DOCETAXEL [Suspect]
     Indication: NON-SMALL CELL LUNG CANCER
     Dosage: 75 MG/M2 (DAY 1 EVERY 3 WEEKS), INTRAVENOUS
     Route: 042

REACTIONS (4)
  - URINARY TRACT INFECTION [None]
  - UROSEPSIS [None]
  - CANDIDIASIS [None]
  - INFECTION [None]
